FAERS Safety Report 8808542 (Version 1)
Quarter: 2012Q4

REPORT INFORMATION
  Report Type: Spontaneous
  Country: US (occurrence: None)
  Receive Date: 20120919
  Receipt Date: 20120919
  Transmission Date: 20130627
  Serious: Yes (Other)
  Sender: FDA-Public Use
  Company Number: AXC-2012-000412

PATIENT
  Sex: Female

DRUGS (3)
  1. MESALAMINE [Suspect]
     Indication: CROHN^S DISEASE
  2. CORTICOSTEROIDS [Suspect]
     Indication: CROHN^S DISEASE
  3. 6-MP [Suspect]
     Indication: CROHN^S DISEASE

REACTIONS (1)
  - Gastrointestinal haemorrhage [None]
